FAERS Safety Report 4319889-X (Version None)
Quarter: 2004Q1

REPORT INFORMATION
  Report Type: 
  Country: None (occurrence: None)
  Receive Date: 20040319
  Receipt Date: 20040308
  Transmission Date: 20041129
  Serious: Yes (Hospitalization, Other)
  Sender: FDA-Public Use
  Company Number: PHBS2004HK03374

PATIENT
  Age: 52 Year
  Sex: Female

DRUGS (7)
  1. CYCLOSPORINE [Suspect]
     Indication: RENAL TRANSPLANT
     Dosage: 175 MG/D
     Dates: start: 20020414
  2. AZATHIOPRINE [Suspect]
     Indication: RENAL TRANSPLANT
     Dosage: 50 MG, QD
  3. PREDNISOLONE [Suspect]
     Indication: RENAL TRANSPLANT
     Dosage: 7.5 MG, QD
  4. PREDNISOLONE [Suspect]
     Dosage: 10 MG, QD
  5. ASPIRIN [Concomitant]
  6. RIFAMPIN [Suspect]
     Indication: CORYNEBACTERIUM INFECTION
     Dosage: 300 MG, BID
     Route: 048
  7. BASILIXIMAB [Suspect]
     Indication: RENAL TRANSPLANT
     Dates: start: 20020414

REACTIONS (20)
  - BLOOD CREATININE INCREASED [None]
  - C-REACTIVE PROTEIN INCREASED [None]
  - CATHETER RELATED COMPLICATION [None]
  - CORYNEBACTERIUM INFECTION [None]
  - EMPYEMA [None]
  - GRAFT DYSFUNCTION [None]
  - GRAM STAIN POSITIVE [None]
  - GRANULOMA [None]
  - HAEMODIALYSIS [None]
  - INFECTION [None]
  - ISCHAEMIC STROKE [None]
  - JAUNDICE CHOLESTATIC [None]
  - LACUNAR INFARCTION [None]
  - LUNG ABSCESS [None]
  - MALAISE [None]
  - NEPHRITIS INTERSTITIAL [None]
  - PYREXIA [None]
  - RENAL IMPAIRMENT [None]
  - RENAL TUBULAR NECROSIS [None]
  - SEPSIS [None]
